FAERS Safety Report 21703183 (Version 1)
Quarter: 2022Q4

REPORT INFORMATION
  Report Type: Report from Study
  Country: US (occurrence: US)
  Receive Date: 20221209
  Receipt Date: 20221209
  Transmission Date: 20230112
  Serious: No
  Sender: FDA-Public Use
  Company Number: US-ACADIA PHARMACEUTICALS INC.-ACA-2022-PIM-003993

PATIENT
  Age: 78 Year
  Sex: Male

DRUGS (42)
  1. NUPLAZID [Suspect]
     Active Substance: PIMAVANSERIN TARTRATE
     Indication: Parkinson^s disease
     Dosage: 34 MILLIGRAM, QD
     Route: 048
     Dates: start: 20221005, end: 20221116
  2. NUPLAZID [Suspect]
     Active Substance: PIMAVANSERIN TARTRATE
     Indication: Hallucination
  3. NUPLAZID [Suspect]
     Active Substance: PIMAVANSERIN TARTRATE
     Indication: Delusion
  4. TYLENOL [Concomitant]
     Active Substance: ACETAMINOPHEN
     Indication: Pain
     Dosage: 500 MILLIGRAM TAKE 2 TABLETS EVERY 4 HOURS AS NEEDED
     Route: 048
  5. ALBUTEROL [Concomitant]
     Active Substance: ALBUTEROL
     Indication: Dyspnoea
     Dosage: 90 MCG/INH INHALATION INHALE 2 PUFFS EVERY 4 HOURS
  6. ALBUTEROL [Concomitant]
     Active Substance: ALBUTEROL
     Indication: Wheezing
     Dosage: 2.5 MG/3 ML (0.083%) INHALE 3 ML DAILY
  7. ALBUTEROL [Concomitant]
     Active Substance: ALBUTEROL
     Indication: Chest discomfort
  8. ATORVASTATIN [Concomitant]
     Active Substance: ATORVASTATIN
     Dosage: 40 MILLIGRAM, QD 1 TABLET
     Route: 048
  9. BETAMETHASONE VALERATE [Concomitant]
     Active Substance: BETAMETHASONE VALERATE
     Dosage: 0.1% APPLY 1 APP TWICE DAILY
     Route: 061
  10. SYMBICORT [Concomitant]
     Active Substance: BUDESONIDE\FORMOTEROL FUMARATE DIHYDRATE
     Dosage: 160 MCG-4.5 MCG/INH INHALATION-INHALE 2 PUFFS TWICE DAILY
  11. BUPROPION [Concomitant]
     Active Substance: BUPROPION
     Dosage: 300 MG/24 HOURS 1 TABLET DAILY
     Route: 048
  12. SINEMET [Concomitant]
     Active Substance: CARBIDOPA\LEVODOPA
     Dosage: 25 MG-100 MG 2 TABLETS THREE TIMES DAILY
     Route: 048
  13. CETIRIZINE HYDROCHLORIDE [Concomitant]
     Active Substance: CETIRIZINE HYDROCHLORIDE
     Dosage: 10 MILLIGRAM, QD
     Route: 048
  14. CICLOPIROX [Concomitant]
     Active Substance: CICLOPIROX
     Dosage: 8% TOPICAL SOLUTION, APPLY 1 APP DAILY
     Route: 061
  15. CLINDAMYCIN [Concomitant]
     Active Substance: CLINDAMYCIN
     Dosage: APPLY TO SCALP NIGHTLY
     Route: 061
  16. VITAMIN B12 [Concomitant]
     Active Substance: CYANOCOBALAMIN
     Dosage: 2500 MICROGRAM, QD
     Route: 060
  17. MUCINEX DM [Concomitant]
     Active Substance: DEXTROMETHORPHAN HYDROBROMIDE\GUAIFENESIN
     Dosage: 1200 MG-60 MG 1 TABLET TWICE DAILY
     Route: 048
  18. DORZOLAMIDE\TIMOLOL [Concomitant]
     Active Substance: DORZOLAMIDE\TIMOLOL
     Dosage: 2.23%-0.68% OPTHALMIC, 1 DROP BOTH EYES TWICE DAILY
     Route: 047
  19. TRULICITY [Concomitant]
     Active Substance: DULAGLUTIDE
     Dosage: 3 MG/0.5 ML, EVERY 1 WEEK
     Route: 058
  20. DULOXETINE [Concomitant]
     Active Substance: DULOXETINE
     Dosage: 60 MILLIGRAM, QD
     Route: 048
  21. DUPIXENT [Concomitant]
     Active Substance: DUPILUMAB
     Dosage: PRE-FILLED PEN 300 MG/2 ML INJECT 300 MG SUBCUTANEOUS ONCE
     Route: 058
  22. JARDIANCE [Concomitant]
     Active Substance: EMPAGLIFLOZIN
     Dosage: 25 MILLIGRAM, QD
     Route: 048
  23. ENOXAPARIN [Concomitant]
     Active Substance: ENOXAPARIN
     Dosage: 100 MG/ML INJECT 1 ML TWICE DAILY FOR 3 DAYS
     Route: 058
  24. EPIPEN [Concomitant]
     Active Substance: EPINEPHRINE
     Dosage: INJECT 0.3 MG ONCE
     Route: 058
  25. ERGOCALCIFEROL [Concomitant]
     Active Substance: ERGOCALCIFEROL
     Dosage: 50,000 UNITS (1.25 MG), 1 CAPSULE EVERY 1 WEEK
     Route: 048
  26. NEXIUM I.V. [Concomitant]
     Active Substance: ESOMEPRAZOLE SODIUM
     Dosage: 40 MILLIGRAM, QD
     Route: 048
  27. FLONASE [Concomitant]
     Active Substance: FLUTICASONE PROPIONATE
     Dosage: 50 MCG/INH, 2 SPRAYS BOTH NARES TWICE DAILY
  28. FUROSEMIDE [Concomitant]
     Active Substance: FUROSEMIDE
     Dosage: 20 MILLIGRAM, QD
     Route: 048
  29. GLIMEPIRIDE [Concomitant]
     Active Substance: GLIMEPIRIDE
     Dosage: 4 MILLIGRAM, QD, 2 TABLETS
  30. IPRATROPIUM [Concomitant]
     Active Substance: IPRATROPIUM
     Dosage: 42 MCG/INH (0.06%) 2 SPRAYS BOTH NARES THREE TIMES DAILY
  31. KETOCONAZOLE [Concomitant]
     Active Substance: KETOCONAZOLE
     Dosage: 2% TOPICAL SHAMPOO APPLY TO EFFECTED AREA ON SCALP 2-3 TIMES WEEKLY
     Route: 061
  32. LINZESS [Concomitant]
     Active Substance: LINACLOTIDE
     Dosage: 290 MCG 1 CAPSULE DAILY
     Route: 048
  33. LOSARTAN [Concomitant]
     Active Substance: LOSARTAN
     Dosage: 25 MILLIGRAM, QD
     Route: 048
  34. METOPROLOL TARTRATE [Concomitant]
     Active Substance: METOPROLOL TARTRATE
     Dosage: 25 MG TAKE 0.5 TABLET TWICE DAILY
     Route: 048
  35. MONTELUKAST [Concomitant]
     Active Substance: MONTELUKAST SODIUM
     Dosage: 10 MILLIGRAM, QD
     Route: 048
  36. NITROGLYCERIN [Concomitant]
     Active Substance: NITROGLYCERIN
     Indication: Chest pain
     Dosage: 0.4 MG 1 TABLET EVERY 5 MINUTES AS NEEDED
     Route: 060
  37. NYSTATIN [Concomitant]
     Active Substance: NYSTATIN
     Dosage: 100,000 UNITS/G APPLY 1 AP TWICE DAILY
     Route: 061
  38. SODIUM CHLORIDE [Concomitant]
     Active Substance: SODIUM CHLORIDE
     Dosage: 3% INHALATION SOLUTION-NEBULIZE ONE VIAL AFTER ALBUTEROL
  39. TAMSULOSIN [Concomitant]
     Active Substance: TAMSULOSIN
     Dosage: TAKE 1 CAPSULE DAILY
     Route: 048
  40. TRAMADOL [Concomitant]
     Active Substance: TRAMADOL
     Dosage: 50 MG 1 TABLET EVERY 12 HOURS
     Route: 048
  41. TRIAMCINOLONE [Concomitant]
     Active Substance: TRIAMCINOLONE
     Dosage: 0.1 % APPLY TO LEGS TWICE, CAN ALSO APPLY TO HANDS 1-2 TIMES DAILY AS NEEDED
     Route: 061
  42. WARFARIN [Concomitant]
     Active Substance: WARFARIN
     Dosage: 5 MG AT BEDTIME TAKE 1 AND 1/2 TABLETS DAILY EXCEPT TAKE 2 TABS ON MONDAY

REACTIONS (1)
  - Drug ineffective [Recovered/Resolved]

NARRATIVE: CASE EVENT DATE: 20221001
